FAERS Safety Report 10658152 (Version 2)
Quarter: 2014Q4

REPORT INFORMATION
  Report Type: Spontaneous
  Country: US (occurrence: US)
  Receive Date: 20141217
  Receipt Date: 20141217
  Transmission Date: 20150529
  Serious: Yes (Other)
  Sender: FDA-Public Use
  Company Number: US-CELGENEUS-163-20785-14042652

PATIENT
  Age: 3 Year
  Sex: Female

DRUGS (8)
  1. THALOMID [Suspect]
     Active Substance: THALIDOMIDE
     Dosage: .6 MILLIGRAM
     Route: 048
     Dates: start: 201310, end: 20140408
  2. VORINOSTAT [Concomitant]
     Active Substance: VORINOSTAT
     Indication: CHOROID PLEXUS CARCINOMA
     Dosage: 4 MILLIGRAM
     Route: 048
     Dates: start: 20130926
  3. PENTAMIDINE [Concomitant]
     Active Substance: PENTAMIDINE
     Indication: PROPHYLAXIS
     Route: 041
     Dates: start: 2012
  4. THALOMID [Suspect]
     Active Substance: THALIDOMIDE
     Indication: CHOROID PLEXUS CARCINOMA
     Route: 048
     Dates: start: 20130926
  5. THALOMID [Suspect]
     Active Substance: THALIDOMIDE
     Route: 048
     Dates: start: 20140415
  6. SUNITINIB [Concomitant]
     Active Substance: SUNITINIB
     Indication: CHOROID PLEXUS CARCINOMA
     Dosage: 100 MILLIGRAM
     Route: 048
     Dates: start: 20130926
  7. SIROLIMUS. [Concomitant]
     Active Substance: SIROLIMUS
     Indication: CHOROID PLEXUS CARCINOMA
     Dosage: 7.5 MILLIGRAM
     Route: 048
     Dates: start: 20130926
  8. ZOFRAN [Concomitant]
     Active Substance: ONDANSETRON HYDROCHLORIDE
     Indication: NAUSEA
     Route: 048
     Dates: start: 20130926

REACTIONS (4)
  - Neutrophil count decreased [Recovered/Resolved]
  - Full blood count decreased [Recovered/Resolved]
  - Pityriasis rosea [Unknown]
  - Viral infection [Unknown]

NARRATIVE: CASE EVENT DATE: 20140408
